FAERS Safety Report 9795052 (Version 2)
Quarter: 2014Q1

REPORT INFORMATION
  Report Type: Spontaneous
  Country: BE (occurrence: BE)
  Receive Date: 20140102
  Receipt Date: 20140117
  Transmission Date: 20141002
  Serious: Yes (Hospitalization)
  Sender: FDA-Public Use
  Company Number: BE-009507513-1312BEL012030

PATIENT
  Sex: Male

DRUGS (1)
  1. AACIDEXAM [Suspect]
     Route: 048

REACTIONS (3)
  - Adverse event [Unknown]
  - Incorrect route of drug administration [Unknown]
  - Drug administration error [Unknown]
